FAERS Safety Report 6403124-2 (Version None)
Quarter: 2009Q4

REPORT INFORMATION
  Report Type: 
  Country: None (occurrence: None)
  Receive Date: 20091016
  Receipt Date: 20091007
  Transmission Date: 20100525
  Serious: Yes (Death)
  Sender: FDA-Public Use
  Company Number: JP-JNJFOC-20090803484

PATIENT
  Sex: Male
  Weight: 48 kg

DRUGS (11)
  1. DUROTEP MT PATCH [Suspect]
     Route: 062
  2. DUROTEP MT PATCH [Suspect]
     Indication: CANCER PAIN
     Route: 062
  3. MODACIN [Suspect]
     Indication: SEPSIS
     Route: 041
     Dates: start: 20090728, end: 20090731
  4. PRODIF [Suspect]
     Route: 041
     Dates: start: 20090728, end: 20090731
  5. PRODIF [Suspect]
     Indication: SEPSIS
     Route: 041
     Dates: start: 20090728, end: 20090731
  6. TARGOCID [Suspect]
     Indication: SEPSIS
     Route: 041
     Dates: start: 20090728, end: 20090731
  7. AMPICILLIN [Concomitant]
     Indication: SEPSIS
     Route: 041
     Dates: start: 20090801, end: 20090804
  8. OXINORM (OXYCODONE HYDROCHLORIDE) [Concomitant]
     Indication: CANCER PAIN
     Route: 048
     Dates: start: 20090802, end: 20090803
  9. DECADRON [Concomitant]
     Indication: MALAISE
     Route: 041
     Dates: start: 20090708
  10. ATARAX [Concomitant]
     Indication: DELIRIUM
     Route: 065
     Dates: start: 20090801, end: 20090801
  11. SERENACE [Concomitant]
     Indication: DELIRIUM
     Route: 065
     Dates: start: 20090801, end: 20090802

REACTIONS (8)
  - ALTERED STATE OF CONSCIOUSNESS [None]
  - CACHEXIA [None]
  - DELIRIUM [None]
  - HEPATIC FAILURE [None]
  - HYPERTHERMIA [None]
  - NEOPLASM MALIGNANT [None]
  - PYELONEPHRITIS [None]
  - SEPSIS [None]
